FAERS Safety Report 14432917 (Version 3)
Quarter: 2018Q1

REPORT INFORMATION
  Report Type: Spontaneous
  Country: US (occurrence: US)
  Receive Date: 20180124
  Receipt Date: 20180215
  Transmission Date: 20180509
  Serious: No
  Sender: FDA-Public Use
  Company Number: US-PFIZER INC-2018030700

PATIENT
  Age: 68 Year
  Sex: Female
  Weight: 59.87 kg

DRUGS (2)
  1. ADVIL [Suspect]
     Active Substance: IBUPROFEN
     Indication: BACK PAIN
  2. ADVIL [Suspect]
     Active Substance: IBUPROFEN
     Indication: BACK DISORDER
     Dosage: 2 DF, 3X/DAY
     Route: 048
     Dates: start: 20180117

REACTIONS (7)
  - Swollen tongue [Recovering/Resolving]
  - Tongue biting [Unknown]
  - Glossodynia [Unknown]
  - Expired product administered [Not Recovered/Not Resolved]
  - Tongue blistering [Not Recovered/Not Resolved]
  - Condition aggravated [Not Recovered/Not Resolved]
  - Drug hypersensitivity [Unknown]

NARRATIVE: CASE EVENT DATE: 20180117
